FAERS Safety Report 21492555 (Version 1)
Quarter: 2022Q4

REPORT INFORMATION
  Report Type: Spontaneous
  Country: US (occurrence: US)
  Receive Date: 20221021
  Receipt Date: 20221021
  Transmission Date: 20230113
  Serious: Yes (Death, Hospitalization)
  Sender: FDA-Public Use
  Company Number: US-MYLANLABS-2022M1115511

PATIENT
  Age: 62 Year
  Sex: Male

DRUGS (4)
  1. WARFARIN [Suspect]
     Active Substance: WARFARIN
     Indication: Anticoagulant therapy
     Dosage: UNK
     Route: 065
  2. ANTI-INHIBITOR COAGULANT COMPLEX [Concomitant]
     Active Substance: ANTI-INHIBITOR COAGULANT COMPLEX
     Indication: Anticoagulant therapy
     Dosage: 500 INTERNATIONAL UNIT; RECEIVED 500 UNITS OF FACTOR-VIII-INHIBITOR-BYPASSING-FRACTION
     Route: 065
  3. VITAMIN K [Concomitant]
     Active Substance: PHYTONADIONE
     Indication: Procoagulant therapy
     Dosage: UNK; PARENTRAL
     Route: 065
  4. HUMAN PLASMA [Concomitant]
     Active Substance: HUMAN PLASMA
     Indication: Procoagulant therapy
     Dosage: 1 INTERNATIONAL UNIT
     Route: 065

REACTIONS (7)
  - Subdural haematoma [Fatal]
  - Anticoagulation drug level above therapeutic [Recovered/Resolved]
  - Hemiparesis [Unknown]
  - Encephalopathy [Unknown]
  - Status epilepticus [Unknown]
  - Bradycardia [Unknown]
  - Cardiogenic shock [Unknown]
